FAERS Safety Report 4824214-1 (Version None)
Quarter: 2005Q4

REPORT INFORMATION
  Report Type: 
  Country: None (occurrence: None)
  Receive Date: 20051108
  Receipt Date: 20051025
  Transmission Date: 20060501
  Serious: Yes (Hospitalization, Other)
  Sender: FDA-Public Use
  Company Number: US_980910411

PATIENT
  Age: 75 Year
  Sex: Female
  Weight: 41 kg

DRUGS (8)
  1. EVISTA [Suspect]
     Indication: OSTEOPOROSIS
     Dosage: 60 MG DAY
     Dates: start: 19980305
  2. FORTEO [Suspect]
     Indication: OSTEOPOROSIS
     Dates: start: 20051005
  3. COZAAR [Concomitant]
  4. VITAMIN E [Concomitant]
  5. AEROBID [Concomitant]
  6. PROVENTIL [Concomitant]
  7. NASACORT [Concomitant]
  8. ASPIRIN [Concomitant]

REACTIONS (25)
  - ARTHRALGIA [None]
  - ASTHENIA [None]
  - BACK PAIN [None]
  - BASEDOW'S DISEASE [None]
  - BLINDNESS [None]
  - BLOOD PRESSURE FLUCTUATION [None]
  - BONE DENSITY DECREASED [None]
  - CONDITION AGGRAVATED [None]
  - DIFFICULTY IN WALKING [None]
  - DISCOMFORT [None]
  - DIZZINESS [None]
  - DYSPNOEA [None]
  - FEELING ABNORMAL [None]
  - HEADACHE [None]
  - INSOMNIA [None]
  - LIMB DISCOMFORT [None]
  - LUNG NEOPLASM [None]
  - LUNG NEOPLASM MALIGNANT [None]
  - MALAISE [None]
  - NAUSEA [None]
  - NEPHROLITHIASIS [None]
  - PAIN IN EXTREMITY [None]
  - PALPITATIONS [None]
  - PHARMACEUTICAL PRODUCT COMPLAINT [None]
  - RETINAL VEIN OCCLUSION [None]
